FAERS Safety Report 13320544 (Version 2)
Quarter: 2018Q4

REPORT INFORMATION
  Report Type: Report from Study
  Country: US (occurrence: US)
  Receive Date: 20170309
  Receipt Date: 20181105
  Transmission Date: 20190204
  Serious: Yes (Life-Threatening, Hospitalization)
  Sender: FDA-Public Use
  Company Number: US-ROCHE-1902512

PATIENT
  Age: 63 Year
  Sex: Female
  Weight: 84.1 kg

DRUGS (4)
  1. SARGRAMOSTIM [Suspect]
     Active Substance: SARGRAMOSTIM
     Dosage: AFTER COMPLETION OF SIX-INOCULATION PRIMARY VACCINE SERIES, A TOTAL OF FOUR SARGRAMOSTIM ONLY BOOSTE
     Route: 023
  2. SARGRAMOSTIM [Suspect]
     Active Substance: SARGRAMOSTIM
     Indication: HER-2 POSITIVE BREAST CANCER
     Dosage: 250 MCG EVERY 3 WEEKS FOR TOTAL 6 INOCULATIONS, 30-120 MINUTES AFTER COMPLETION OF TRASTUZUMAB INFUS
     Route: 023
  3. TRASTUZUMAB. [Suspect]
     Active Substance: TRASTUZUMAB
     Dosage: 6 MG/KG EVERY 3 WEEKS, MAINTENANCE DOSE
     Route: 042
  4. TRASTUZUMAB. [Suspect]
     Active Substance: TRASTUZUMAB
     Indication: HER-2 POSITIVE BREAST CANCER
     Dosage: LOADING DOSE
     Route: 042
     Dates: start: 20151215

REACTIONS (1)
  - Atrial fibrillation [Recovered/Resolved]

NARRATIVE: CASE EVENT DATE: 20170130
